FAERS Safety Report 8068965-7 (Version None)
Quarter: 2012Q1

REPORT INFORMATION
  Report Type: 
  Country: None (occurrence: None)
  Receive Date: 20120125
  Receipt Date: 20120114
  Transmission Date: 20120608
  Serious: Yes (Hospitalization)
  Sender: FDA-Public Use
  Company Number: US-PAR PHARMACEUTICAL, INC-2012SCPR003922

PATIENT

DRUGS (3)
  1. ACETAMINOPHEN AND HYDROCODONE BITARTRATE [Concomitant]
     Indication: ABDOMINAL PAIN
     Dosage: 5/500 TABLET, OCCASIONAL USE
     Route: 065
  2. HYDROXYCITRIC ACID [Suspect]
     Indication: PHYTOTHERAPY
     Dosage: 500 MG, / DAY, 5 DAYS PER WEEK FOR 1 YEAR
     Route: 065
  3. RANITIDINE [Suspect]
     Indication: PRODUCT USED FOR UNKNOWN INDICATION
     Dosage: 150 MG, / DAY
     Route: 065

REACTIONS (2)
  - RENAL FAILURE ACUTE [None]
  - NEPHROPATHY [None]
